FAERS Safety Report 12373148 (Version 1)
Quarter: 2016Q2

REPORT INFORMATION
  Report Type: Spontaneous
  Country: US (occurrence: US)
  Receive Date: 20160516
  Receipt Date: 20160516
  Transmission Date: 20160815
  Serious: Yes (Hospitalization)
  Sender: FDA-Public Use
  Company Number: US-MALLINCKRODT-T201601454

PATIENT
  Age: 1 Year
  Sex: Female
  Weight: 8 kg

DRUGS (3)
  1. KEPPRA [Concomitant]
     Active Substance: LEVETIRACETAM
  2. H.P. ACTHAR [Suspect]
     Active Substance: CORTICOTROPIN
     Indication: INFANTILE SPASMS
     Dosage: 60 UNITS AT THE HOUR OF SLEEP (HS)
     Route: 030
     Dates: start: 20160404
  3. PYRIDOXINE [Concomitant]
     Active Substance: PYRIDOXINE

REACTIONS (2)
  - Gastroenteritis bacterial [Recovering/Resolving]
  - Irritability [Recovering/Resolving]

NARRATIVE: CASE EVENT DATE: 20160417
